FAERS Safety Report 12287222 (Version 1)
Quarter: 2016Q2

REPORT INFORMATION
  Report Type: Spontaneous
  Country: GB (occurrence: GB)
  Receive Date: 20160420
  Receipt Date: 20160420
  Transmission Date: 20160815
  Serious: Yes (Death)
  Sender: FDA-Public Use
  Company Number: GB-PFIZER INC-2016221154

PATIENT
  Age: 68 Year
  Sex: Female
  Weight: 61 kg

DRUGS (6)
  1. FERROUS SULFATE. [Concomitant]
     Active Substance: FERROUS SULFATE
  2. PREGABALIN. [Suspect]
     Active Substance: PREGABALIN
     Indication: NEURALGIA
     Dosage: 100 MG, 3X/DAY
     Route: 048
     Dates: start: 20160218
  3. LIVIAL [Concomitant]
     Active Substance: TIBOLONE
  4. OXYGESIC PROLONGED RELEASE [Concomitant]
     Dosage: UNK
  5. OXYBUTYNIN [Concomitant]
     Active Substance: OXYBUTYNIN
     Dosage: UNK
  6. CITALOPRAM [Concomitant]
     Active Substance: CITALOPRAM HYDROBROMIDE

REACTIONS (9)
  - Muscle spasms [Not Recovered/Not Resolved]
  - Dysaesthesia [Not Recovered/Not Resolved]
  - Dystonia [Not Recovered/Not Resolved]
  - Sensory disturbance [Unknown]
  - Left ventricular hypertrophy [Fatal]
  - Acute left ventricular failure [Fatal]
  - Muscle twitching [Not Recovered/Not Resolved]
  - Malaise [Not Recovered/Not Resolved]
  - Feeling drunk [Unknown]

NARRATIVE: CASE EVENT DATE: 20160303
